FAERS Safety Report 17817308 (Version 1)
Quarter: 2020Q2

REPORT INFORMATION
  Report Type: Report from Study
  Country: CA (occurrence: CA)
  Receive Date: 20200522
  Receipt Date: 20200522
  Transmission Date: 20200714
  Serious: Yes (Other)
  Sender: FDA-Public Use
  Company Number: CA-JNJFOC-20181230007

PATIENT
  Age: 73 Year
  Sex: Male
  Weight: 69 kg

DRUGS (2)
  1. REMICADE [Suspect]
     Active Substance: INFLIXIMAB
     Dosage: ON 11-MAY-2020, THERAPY WAS CHANGED TO STELARA
     Route: 042
     Dates: start: 2015, end: 20190426
  2. REMICADE [Suspect]
     Active Substance: INFLIXIMAB
     Indication: CROHN^S DISEASE
     Route: 042
     Dates: start: 2015, end: 20190426

REACTIONS (4)
  - Swelling face [Unknown]
  - Lymphoma [Recovering/Resolving]
  - Toothache [Unknown]
  - Biopsy [Unknown]

NARRATIVE: CASE EVENT DATE: 20181221
